FAERS Safety Report 20194958 (Version 3)
Quarter: 2022Q1

REPORT INFORMATION
  Report Type: Spontaneous
  Country: IN (occurrence: IN)
  Receive Date: 20211216
  Receipt Date: 20220211
  Transmission Date: 20220423
  Serious: Yes (Death)
  Sender: FDA-Public Use
  Company Number: IN-PFIZER INC-2020192548

PATIENT
  Age: 65 Year
  Sex: Male

DRUGS (2)
  1. SUTENT [Suspect]
     Active Substance: SUNITINIB MALATE
     Indication: Metastatic renal cell carcinoma
     Dosage: 50 MG
  2. SUTENT [Suspect]
     Active Substance: SUNITINIB MALATE
     Dosage: 37.5 MG, CYCLIC (ONCE A DAY, 2 WEEKS ON 1 WEEK OFF)
     Route: 048
     Dates: start: 20200514

REACTIONS (13)
  - Neoplasm progression [Fatal]
  - Hiatus hernia [Unknown]
  - Osteopenia [Unknown]
  - Cholelithiasis [Unknown]
  - Renal cyst [Unknown]
  - Cystitis [Unknown]
  - Bladder dilatation [Unknown]
  - Bladder hypertrophy [Unknown]
  - Diarrhoea [Unknown]
  - Dyspepsia [Unknown]
  - Ulcer [Unknown]
  - Nausea [Unknown]
  - Off label use [Unknown]
